FAERS Safety Report 5882901-0 (Version None)
Quarter: 2008Q3

REPORT INFORMATION
  Report Type: 
  Country: None (occurrence: None)
  Receive Date: 20080913
  Receipt Date: 20080821
  Transmission Date: 20090109
  Serious: No
  Sender: FDA-Public Use
  Company Number: US-ABBOTT-08P-163-0471966-00

PATIENT
  Sex: Male

DRUGS (1)
  1. HUMIRA [Suspect]
     Indication: RHEUMATOID ARTHRITIS
     Route: 058
     Dates: start: 20080701

REACTIONS (7)
  - ASTHENIA [None]
  - DIZZINESS [None]
  - FATIGUE [None]
  - HYPOAESTHESIA [None]
  - KIDNEY INFECTION [None]
  - NERVE COMPRESSION [None]
  - PAIN [None]
